FAERS Safety Report 9160502 (Version 1)
Quarter: 2013Q1

REPORT INFORMATION
  Report Type: Spontaneous
  Country: FR (occurrence: None)
  Receive Date: 20130219
  Receipt Date: 20130219
  Transmission Date: 20140127
  Serious: Yes (Hospitalization)
  Sender: FDA-Public Use
  Company Number: DSM-2013-00198

PATIENT
  Age: 85 Year
  Sex: Female

DRUGS (1)
  1. COOLMETEC [Suspect]
     Indication: HYPERTENSION
     Route: 048
     Dates: end: 20101207

REACTIONS (8)
  - Diarrhoea [None]
  - Renal failure acute [None]
  - Circulatory collapse [None]
  - Diverticulum [None]
  - Blood culture positive [None]
  - Staphylococcus test positive [None]
  - Renal tubular necrosis [None]
  - Metabolic acidosis [None]
